FAERS Safety Report 5127098-X (Version None)
Quarter: 2006Q4

REPORT INFORMATION
  Report Type: 
  Country: None (occurrence: None)
  Receive Date: 20061013
  Receipt Date: 20061002
  Transmission Date: 20070319
  Serious: Yes (Other)
  Sender: FDA-Public Use
  Company Number: US-JNJFOC-20061000910

PATIENT
  Sex: Female

DRUGS (4)
  1. REMICADE [Suspect]
     Indication: PSORIATIC ARTHROPATHY
  2. GLUCOPHAGE [Concomitant]
     Indication: DIABETES MELLITUS
  3. ZOCOR [Concomitant]
     Indication: BLOOD CHOLESTEROL
  4. SYNTHROID [Concomitant]
     Indication: HYPOTHYROIDISM

REACTIONS (1)
  - CARDIAC DISORDER [None]
